FAERS Safety Report 4737423-7 (Version None)
Quarter: 2005Q3

REPORT INFORMATION
  Report Type: 
  Country: None (occurrence: None)
  Receive Date: 20050805
  Receipt Date: 20050720
  Transmission Date: 20060218
  Serious: Yes (Other)
  Sender: FDA-Public Use
  Company Number: 27116

PATIENT
  Age: 82 Year
  Sex: Male

DRUGS (6)
  1. ALDARA [Suspect]
     Indication: BASAL CELL CARCINOMA
     Dosage: SEE IMAGE
     Route: 061
     Dates: start: 20030101, end: 20030101
  2. ALDARA [Suspect]
     Indication: BASAL CELL CARCINOMA
     Dosage: SEE IMAGE
     Route: 061
     Dates: start: 20050608, end: 20050701
  3. ASPIRIN [Concomitant]
  4. MULTIPLE VITAMIN [Concomitant]
  5. VITAMIN E [Concomitant]
  6. ASCORBIC ACID [Concomitant]

REACTIONS (7)
  - ALANINE AMINOTRANSFERASE INCREASED [None]
  - APPLICATION SITE ERYTHEMA [None]
  - APPLICATION SITE REACTION [None]
  - ASPARTATE AMINOTRANSFERASE INCREASED [None]
  - BLOOD ALKALINE PHOSPHATASE INCREASED [None]
  - BLOOD IRON INCREASED [None]
  - SCAB [None]
